FAERS Safety Report 8965146 (Version 1)
Quarter: 2012Q4

REPORT INFORMATION
  Report Type: 
  Country: CL (occurrence: CL)
  Receive Date: 20121213
  Receipt Date: 20121213
  Transmission Date: 20130627
  Serious: Yes (Hospitalization)
  Sender: FDA-Public Use
  Company Number: CL-BRISTOL-MYERS SQUIBB COMPANY-17114851

PATIENT
  Age: 68 Year
  Sex: Male

DRUGS (3)
  1. YERVOY [Suspect]
     Indication: METASTATIC MALIGNANT MELANOMA
     Dosage: No of inf:3
14Nov2012(4th inf)
     Dates: start: 20120912
  2. BISOPROLOL [Concomitant]
  3. CARDURA [Concomitant]

REACTIONS (5)
  - Lymphadenopathy [Unknown]
  - Gastrointestinal disorder [Unknown]
  - Abdominal pain [Unknown]
  - Flatulence [Unknown]
  - Diarrhoea [Unknown]
